FAERS Safety Report 8101872-X (Version None)
Quarter: 2012Q1

REPORT INFORMATION
  Report Type: 
  Country: None (occurrence: None)
  Receive Date: 20120131
  Receipt Date: 20120126
  Transmission Date: 20120608
  Serious: Yes (Hospitalization, Other)
  Sender: FDA-Public Use
  Company Number: PHHY2012BR007539

PATIENT
  Sex: Male
  Weight: 90 kg

DRUGS (1)
  1. EXELON [Suspect]
     Indication: DEMENTIA ALZHEIMER'S TYPE
     Dosage: 6 MG, BID
     Route: 048

REACTIONS (6)
  - RENAL FAILURE [None]
  - AGITATION [None]
  - DEPRESSED MOOD [None]
  - CONVULSION [None]
  - MALAISE [None]
  - DEPRESSIVE SYMPTOM [None]
